FAERS Safety Report 10097599 (Version 1)
Quarter: 2014Q2

REPORT INFORMATION
  Report Type: Spontaneous
  Country: US (occurrence: US)
  Receive Date: 20140423
  Receipt Date: 20140423
  Transmission Date: 20141212
  Serious: No
  Sender: FDA-Public Use
  Company Number: US-BIOGENIDEC-2014BI033197

PATIENT
  Age: 57 Year
  Sex: Female

DRUGS (13)
  1. TECFIDERA [Suspect]
     Indication: MULTIPLE SCLEROSIS
     Route: 048
  2. AMITRIPTYLINE HCL [Concomitant]
  3. ASPIR-81 [Concomitant]
  4. CARVEDILOL [Concomitant]
  5. CENTRUM SILVER ULTRA WOMENS [Concomitant]
  6. CLONAZEPAM [Concomitant]
  7. DIAZEPAM [Concomitant]
  8. HYOSCYAMINE SULFATE ER [Concomitant]
  9. LEVOTHYROXINE SODIUM [Concomitant]
  10. LOSARTAN POTASSIUM-HCTZ [Concomitant]
  11. OMEPRAZOL [Concomitant]
  12. PERPHENAZINE [Concomitant]
  13. SERTRALINE HCL [Concomitant]

REACTIONS (1)
  - Laboratory test abnormal [Unknown]
